FAERS Safety Report 19150392 (Version 1)
Quarter: 2021Q2

REPORT INFORMATION
  Report Type: Spontaneous
  Country: US (occurrence: US)
  Receive Date: 20210418
  Receipt Date: 20210418
  Transmission Date: 20210717
  Serious: No
  Sender: FDA-Public Use
  Company Number: US-ELI_LILLY_AND_COMPANY-US202103014155

PATIENT
  Sex: Male

DRUGS (5)
  1. NOVOLOG [Concomitant]
     Active Substance: INSULIN ASPART
     Indication: TYPE 2 DIABETES MELLITUS
     Dosage: 55 U
  2. NOVOLOG [Concomitant]
     Active Substance: INSULIN ASPART
     Dosage: 65 U
  3. NOVOLOG [Concomitant]
     Active Substance: INSULIN ASPART
     Dosage: 55 U
  4. BASAGLAR [Suspect]
     Active Substance: INSULIN GLARGINE
     Dosage: 140 U, DAILY
     Route: 058
  5. BASAGLAR [Suspect]
     Active Substance: INSULIN GLARGINE
     Indication: TYPE 2 DIABETES MELLITUS
     Dosage: 140 U, DAILY
     Route: 058

REACTIONS (3)
  - Nasopharyngitis [Unknown]
  - Accidental underdose [Unknown]
  - Illness [Unknown]
